FAERS Safety Report 9015082 (Version 1)
Quarter: 2013Q1

REPORT INFORMATION
  Report Type: Spontaneous
  Country: US (occurrence: US)
  Receive Date: 20130116
  Receipt Date: 20130116
  Transmission Date: 20140127
  Serious: No
  Sender: FDA-Public Use
  Company Number: US-BIOGENIDEC-2013BI002599

PATIENT
  Sex: Female

DRUGS (7)
  1. AVONEX [Suspect]
     Indication: MULTIPLE SCLEROSIS
     Route: 030
     Dates: start: 20011003
  2. TYSABRI [Concomitant]
     Indication: MULTIPLE SCLEROSIS
     Route: 042
     Dates: start: 20120507, end: 20121102
  3. SYNTHROID [Concomitant]
     Indication: THYROID DISORDER
  4. KEPPRA [Concomitant]
     Indication: CONVULSION
     Route: 048
     Dates: start: 20120512
  5. RAZADYNE [Concomitant]
     Indication: MEMORY IMPAIRMENT
  6. DILANTIN [Concomitant]
     Indication: ANTICONVULSANT DRUG LEVEL DECREASED
  7. DILANTIN [Concomitant]
     Indication: COMPLEX PARTIAL SEIZURES

REACTIONS (2)
  - Asthma [Not Recovered/Not Resolved]
  - Urticaria [Recovered/Resolved]
